FAERS Safety Report 9154810 (Version 1)
Quarter: 2013Q1

REPORT INFORMATION
  Report Type: Spontaneous
  Country: US (occurrence: None)
  Receive Date: 20130305
  Receipt Date: 20130305
  Transmission Date: 20140127
  Serious: Yes (Other)
  Sender: FDA-Public Use
  Company Number: None

PATIENT
  Age: 52 Year
  Sex: Female
  Weight: 83.01 kg

DRUGS (1)
  1. FORTEO [Suspect]
     Indication: OSTEOPOROSIS POSTMENOPAUSAL
     Dates: start: 20120904, end: 20130129

REACTIONS (4)
  - Pain [None]
  - Arthralgia [None]
  - Arthralgia [None]
  - Arthralgia [None]
